FAERS Safety Report 12242312 (Version 2)
Quarter: 2016Q2

REPORT INFORMATION
  Report Type: Spontaneous
  Country: FR (occurrence: FR)
  Receive Date: 20160406
  Receipt Date: 20160411
  Transmission Date: 20160815
  Serious: Yes (Hospitalization)
  Sender: FDA-Public Use
  Company Number: FR-ASTRAZENECA-2016SE35589

PATIENT
  Age: 39 Year
  Sex: Male

DRUGS (5)
  1. BRILIQUE [Suspect]
     Active Substance: TICAGRELOR
     Indication: VASCULAR DEVICE USER
     Route: 048
     Dates: end: 20160216
  2. KARDEGIC [Suspect]
     Active Substance: ASPIRIN LYSINE
     Indication: VASCULAR DEVICE USER
     Route: 048
     Dates: start: 20150307
  3. TAHOR [Concomitant]
     Active Substance: ATORVASTATIN CALCIUM
  4. KARDEGIC [Suspect]
     Active Substance: ASPIRIN LYSINE
     Indication: VASCULAR DEVICE USER
     Route: 048
     Dates: end: 20160216
  5. ATENOLOL. [Concomitant]
     Active Substance: ATENOLOL

REACTIONS (7)
  - Head injury [Recovering/Resolving]
  - Loss of consciousness [Recovered/Resolved]
  - Subdural haematoma [Recovering/Resolving]
  - Brain contusion [Recovering/Resolving]
  - Subarachnoid haemorrhage [Recovering/Resolving]
  - Intracranial mass [Recovering/Resolving]
  - Off label use [Recovered/Resolved]

NARRATIVE: CASE EVENT DATE: 20160216
